FAERS Safety Report 4960959-0 (Version None)
Quarter: 2006Q1

REPORT INFORMATION
  Report Type: 
  Country: None (occurrence: None)
  Receive Date: 20060130
  Receipt Date: 20050613
  Transmission Date: 20060701
  Serious: Yes (Other)
  Sender: FDA-Public Use
  Company Number: 142347USA

PATIENT
  Age: 58 Year
  Sex: Female

DRUGS (2)
  1. COPAXONE [Suspect]
     Indication: MULTIPLE SCLEROSIS
  2. COPAXONE [Suspect]
     Indication: MULTIPLE SCLEROSIS
     Dates: start: 20050301

REACTIONS (3)
  - DIPLOPIA [None]
  - INJECTION SITE ATROPHY [None]
  - NUCLEAR MAGNETIC RESONANCE IMAGING ABNORMAL [None]
